FAERS Safety Report 12580851 (Version 1)
Quarter: 2016Q3

REPORT INFORMATION
  Report Type: Not Available
  Country: None (occurrence: US)
  Receive Date: 20160721
  Receipt Date: 20160721
  Transmission Date: 20161109
  Serious: No
  Sender: FDA-Public Use
  Company Number: US-AKORN-34121

PATIENT
  Sex: Female

DRUGS (1)
  1. ERYTHROMYCIN OPHTHALMIC OINTMENT 0.5%, USP [Suspect]
     Active Substance: ERYTHROMYCIN

REACTIONS (4)
  - Eyelids pruritus [Unknown]
  - Eye irritation [Unknown]
  - Application site pain [None]
  - Eye pruritus [Unknown]
